FAERS Safety Report 16466258 (Version 8)
Quarter: 2020Q4

REPORT INFORMATION
  Report Type: Report from Study
  Country: None (occurrence: NL)
  Receive Date: 20190622
  Receipt Date: 20201223
  Transmission Date: 20210113
  Serious: Yes (Other)
  Sender: FDA-Public Use
  Company Number: NL-ABBVIE-18K-114-2350645-00

PATIENT
  Sex: Female
  Weight: 51.7 kg

DRUGS (6)
  1. DUODOPA [Suspect]
     Active Substance: CARBIDOPA\LEVODOPA
     Dosage: MD: 11 ML CD: 2.3 ML/H ED: 1,5 ML
     Route: 050
  2. MOVICOLON [Concomitant]
     Active Substance: POLYETHYLENE GLYCOL 3350\POTASSIUM CHLORIDE\SODIUM BICARBONATE\SODIUM CHLORIDE
     Indication: ABNORMAL FAECES
  3. LEVODOPA [Concomitant]
     Active Substance: LEVODOPA
     Indication: PRODUCT USED FOR UNKNOWN INDICATION
     Route: 048
  4. DUODOPA [Suspect]
     Active Substance: CARBIDOPA\LEVODOPA
     Indication: PARKINSON^S DISEASE
     Dosage: MD: 12, CD: 2.3, ED: 2 REMAINS AT 16 HOURS
     Route: 050
     Dates: start: 20180423
  5. DUODOPA [Suspect]
     Active Substance: CARBIDOPA\LEVODOPA
     Dosage: MD: 11, CD: 2.3, ED: 2
     Route: 050
     Dates: start: 20180423
  6. MACROGOL [Concomitant]
     Active Substance: POLYETHYLENE GLYCOLS
     Indication: ABNORMAL FAECES
     Route: 065

REACTIONS (56)
  - Negative thoughts [Not Recovered/Not Resolved]
  - Motor dysfunction [Recovering/Resolving]
  - Stoma site pain [Recovered/Resolved]
  - Confusional state [Recovering/Resolving]
  - Anxiety [Not Recovered/Not Resolved]
  - Dyskinesia [Recovered/Resolved]
  - Abnormal faeces [Not Recovered/Not Resolved]
  - Dementia [Not Recovered/Not Resolved]
  - Cognitive disorder [Not Recovered/Not Resolved]
  - Poor quality sleep [Not Recovered/Not Resolved]
  - Dyschezia [Recovered/Resolved]
  - Appetite disorder [Recovered/Resolved]
  - Abnormal dreams [Recovered/Resolved]
  - Anosognosia [Not Recovered/Not Resolved]
  - Fatigue [Not Recovered/Not Resolved]
  - Freezing phenomenon [Not Recovered/Not Resolved]
  - Head discomfort [Not Recovered/Not Resolved]
  - Fear of falling [Not Recovered/Not Resolved]
  - Hypoaesthesia [Not Recovered/Not Resolved]
  - Neoplasm malignant [Unknown]
  - Loss of personal independence in daily activities [Not Recovered/Not Resolved]
  - Emotional disorder [Not Recovered/Not Resolved]
  - Hypophagia [Recovered/Resolved]
  - Bradyphrenia [Unknown]
  - Stoma site erythema [Recovered/Resolved]
  - Unevaluable event [Recovered/Resolved]
  - Therapeutic response shortened [Not Recovered/Not Resolved]
  - Medical device discomfort [Unknown]
  - Underdose [Not Recovered/Not Resolved]
  - Intentional product misuse [Not Recovered/Not Resolved]
  - Cognitive disorder [Not Recovered/Not Resolved]
  - Mobility decreased [Unknown]
  - Stoma site inflammation [Recovered/Resolved]
  - On and off phenomenon [Not Recovered/Not Resolved]
  - Stoma site irritation [Not Recovered/Not Resolved]
  - Stoma site discharge [Unknown]
  - Mass [Not Recovered/Not Resolved]
  - Feeling hot [Not Recovered/Not Resolved]
  - Disturbance in attention [Not Recovered/Not Resolved]
  - Reduced facial expression [Not Recovered/Not Resolved]
  - Weight decreased [Recovered/Resolved]
  - Stoma site discharge [Recovered/Resolved]
  - Dyskinesia [Recovering/Resolving]
  - Stoma site haemorrhage [Not Recovered/Not Resolved]
  - Abnormal faeces [Recovered/Resolved]
  - Stress [Recovering/Resolving]
  - Hallucination, visual [Not Recovered/Not Resolved]
  - Somnolence [Not Recovered/Not Resolved]
  - Stoma site extravasation [Not Recovered/Not Resolved]
  - Unevaluable event [Not Recovered/Not Resolved]
  - Amnesia [Not Recovered/Not Resolved]
  - Muscle rigidity [Not Recovered/Not Resolved]
  - Device issue [Not Recovered/Not Resolved]
  - Fibroma [Not Recovered/Not Resolved]
  - Hallucination [Not Recovered/Not Resolved]
  - Stoma site discharge [Not Recovered/Not Resolved]

NARRATIVE: CASE EVENT DATE: 2020
